FAERS Safety Report 20676231 (Version 2)
Quarter: 2022Q2

REPORT INFORMATION
  Report Type: Spontaneous
  Country: US (occurrence: US)
  Receive Date: 20220405
  Receipt Date: 20220516
  Transmission Date: 20220720
  Serious: Yes (Hospitalization, Other)
  Sender: FDA-Public Use
  Company Number: US-PFIZER INC-202200395359

PATIENT
  Age: 67 Year
  Sex: Male
  Weight: 92.971 kg

DRUGS (2)
  1. NICOTROL [Suspect]
     Active Substance: NICOTINE
     Indication: Smoking cessation therapy
     Dosage: 1 OR 2 CARTRIDGES, DAILY
     Dates: start: 20190615
  2. NICOTROL [Suspect]
     Active Substance: NICOTINE
     Dosage: 10 MG, 2X/DAY (TWICE A DAY)
     Dates: start: 202005

REACTIONS (3)
  - Chronic obstructive pulmonary disease [Unknown]
  - Myocardial infarction [Unknown]
  - Atrial fibrillation [Unknown]
